FAERS Safety Report 11135901 (Version 1)
Quarter: 2015Q2

REPORT INFORMATION
  Report Type: Spontaneous
  Country: FR (occurrence: FR)
  Receive Date: 20150526
  Receipt Date: 20150526
  Transmission Date: 20150821
  Serious: Yes (Hospitalization)
  Sender: FDA-Public Use
  Company Number: FR-PFIZER INC-2015171227

PATIENT
  Age: 84 Year
  Sex: Male
  Weight: 65 kg

DRUGS (14)
  1. TOBRADEX [Concomitant]
     Active Substance: DEXAMETHASONE\TOBRAMYCIN
  2. CARDENSIEL [Concomitant]
     Active Substance: BISOPROLOL FUMARATE
  3. NEOSYNEPHRINE [Concomitant]
     Active Substance: PHENYLEPHRINE HYDROCHLORIDE
  4. FUMAFER [Concomitant]
     Active Substance: FERROUS FUMARATE
  5. LEVOFLOXACIN. [Concomitant]
     Active Substance: LEVOFLOXACIN
  6. PERMIXON [Concomitant]
     Active Substance: SAW PALMETTO
  7. IMIPENEM [Concomitant]
     Active Substance: IMIPENEM
  8. RAMIPRIL. [Concomitant]
     Active Substance: RAMIPRIL
  9. MYDRIATICUM [Concomitant]
     Active Substance: TROPICAMIDE
  10. KARDEGIC [Concomitant]
     Active Substance: ASPIRIN LYSINE
  11. PLAVIX [Concomitant]
     Active Substance: CLOPIDOGREL BISULFATE
  12. SOLU-MEDROL [Suspect]
     Active Substance: METHYLPREDNISOLONE SODIUM SUCCINATE
     Indication: ENDOPHTHALMITIS
     Dosage: 250 MG, UNK
     Route: 042
     Dates: start: 20150303, end: 20150303
  13. ZOLPIDEM [Concomitant]
     Active Substance: ZOLPIDEM\ZOLPIDEM TARTRATE
  14. ATROPINE [Concomitant]
     Active Substance: ATROPINE

REACTIONS (1)
  - Acute coronary syndrome [Recovered/Resolved]

NARRATIVE: CASE EVENT DATE: 20150303
